FAERS Safety Report 7635502-8 (Version None)
Quarter: 2011Q3

REPORT INFORMATION
  Report Type: 
  Country: None (occurrence: None)
  Receive Date: 20110718
  Receipt Date: 20110704
  Transmission Date: 20111222
  Serious: Yes (Hospitalization)
  Sender: FDA-Public Use
  Company Number: 1000021226

PATIENT
  Age: 56 Year
  Sex: Female
  Weight: 65 kg

DRUGS (11)
  1. MILNACIPRAN (MILNACIPRAN HYDROCHLORIDE) (50 MILLIGRAM, CAPSULES) [Suspect]
     Indication: DEPRESSION
     Dosage: 100 MG (50 MG, 2 IN 1 D), ORAL; 250 MG, ORAL; 200 OR 250 MG IN ALTERNATIVE, ORAL
     Route: 048
     Dates: start: 20050511
  2. MILNACIPRAN (MILNACIPRAN HYDROCHLORIDE) (50 MILLIGRAM, CAPSULES) [Suspect]
     Indication: DEPRESSION
     Dosage: 100 MG (50 MG, 2 IN 1 D), ORAL; 250 MG, ORAL; 200 OR 250 MG IN ALTERNATIVE, ORAL
     Route: 048
     Dates: start: 20061102
  3. MILNACIPRAN (MILNACIPRAN HYDROCHLORIDE) (50 MILLIGRAM, CAPSULES) [Suspect]
     Indication: DEPRESSION
     Dosage: 100 MG (50 MG, 2 IN 1 D), ORAL; 250 MG, ORAL; 200 OR 250 MG IN ALTERNATIVE, ORAL
     Route: 048
     Dates: end: 20101109
  4. LEXOMIL (BROMAZEPAM) (BROMAZEPAM) [Concomitant]
  5. ATARAX [Concomitant]
  6. ABILIFY (ARIPIPRAZOLE) (ARIPIPRAZOLE) [Concomitant]
  7. NEXIUM [Concomitant]
  8. STABLON (TIANEPTINE SODIUM) (TIANEPTINE SODIUM) [Concomitant]
  9. VENTOLINE (SALBUTAMOL SULFATE) (SALBUTAMOL SULFATE) [Concomitant]
  10. DAFALGAN (PARACETAMOL) (PARACETAMOL) [Concomitant]
  11. IMOVANE (ZOPICLONE) (ZOPICLONE) [Concomitant]

REACTIONS (8)
  - STRESS [None]
  - PSYCHOMOTOR RETARDATION [None]
  - MENINGORRHAGIA [None]
  - PLATELET COUNT INCREASED [None]
  - ALANINE AMINOTRANSFERASE INCREASED [None]
  - CEREBRAL ARTERIOSCLEROSIS [None]
  - BRADYPHRENIA [None]
  - GAMMA-GLUTAMYLTRANSFERASE INCREASED [None]
